FAERS Safety Report 6806352-7 (Version None)
Quarter: 2010Q2

REPORT INFORMATION
  Report Type: 
  Country: None (occurrence: None)
  Receive Date: 20100629
  Receipt Date: 20080419
  Transmission Date: 20101027
  Serious: No
  Sender: FDA-Public Use
  Company Number: US-PFIZER INC-2008000462

PATIENT
  Sex: Male
  Weight: 70.454 kg

DRUGS (12)
  1. TIKOSYN [Suspect]
     Indication: ATRIAL FIBRILLATION
     Route: 048
  2. VITAMIN C [Suspect]
  3. POTASSIUM CHLORIDE [Concomitant]
  4. DIGITEK [Concomitant]
  5. LISINOPRIL [Concomitant]
  6. ANTIHYPERTENSIVES [Concomitant]
  7. CARVEDILOL [Concomitant]
  8. COREG [Concomitant]
  9. WARFARIN SODIUM [Concomitant]
  10. ATROVENT [Concomitant]
  11. ADVAIR DISKUS 100/50 [Concomitant]
  12. PREDNISONE [Concomitant]

REACTIONS (1)
  - HEPATIC ENZYME INCREASED [None]
